FAERS Safety Report 20924441 (Version 3)
Quarter: 2022Q3

REPORT INFORMATION
  Report Type: Spontaneous
  Country: TW (occurrence: TW)
  Receive Date: 20220607
  Receipt Date: 20220726
  Transmission Date: 20221027
  Serious: Yes (Life-Threatening, Other)
  Sender: FDA-Public Use
  Company Number: TW-PFIZER INC-202200767339

PATIENT
  Age: 69 Year
  Sex: Female

DRUGS (3)
  1. FLUCONAZOLE [Interacting]
     Active Substance: FLUCONAZOLE
     Indication: Tinea capitis
     Dosage: 300 MG, DAILY
     Route: 048
  2. BIPERIDEN [Interacting]
     Active Substance: BIPERIDEN
     Indication: Parkinsonism
     Dosage: 4 MG, DAILY
  3. RISPERIDONE [Concomitant]
     Active Substance: RISPERIDONE
     Indication: Psychotic symptom
     Dosage: 2 MG, DAILY

REACTIONS (2)
  - Potentiating drug interaction [Recovered/Resolved]
  - Delirium [Recovered/Resolved]
